FAERS Safety Report 10037680 (Version 1)
Quarter: 2014Q1

REPORT INFORMATION
  Report Type: Spontaneous
  Country: US (occurrence: US)
  Receive Date: 20140326
  Receipt Date: 20140326
  Transmission Date: 20141002
  Serious: No
  Sender: FDA-Public Use
  Company Number: US-PFIZER INC-2014083167

PATIENT
  Age: 41 Year
  Sex: Male
  Weight: 106.58 kg

DRUGS (5)
  1. LYRICA [Suspect]
     Indication: SPINOCEREBELLAR ATAXIA
     Dosage: 50 MG, DAILY
     Route: 048
     Dates: start: 201403, end: 201403
  2. HYDROCODONE [Suspect]
     Indication: PAIN
     Dosage: ^10/325MG^ DAILY
     Dates: start: 2013
  3. LOSARTAN [Concomitant]
     Indication: HYPERTENSION
     Dosage: 100 MG, DAILY
  4. PROPANOL [Concomitant]
     Indication: HYPERTENSION
     Dosage: 10 MG, 2X/DAY
  5. DICLOFENAC SODIUM [Concomitant]
     Indication: PAIN
     Dosage: 10 MG, 3X/DAY

REACTIONS (2)
  - Miosis [Recovered/Resolved]
  - Headache [Not Recovered/Not Resolved]
